FAERS Safety Report 5964867-8 (Version None)
Quarter: 2008Q4

REPORT INFORMATION
  Report Type: 
  Country: None (occurrence: None)
  Receive Date: 20081124
  Receipt Date: 20081124
  Transmission Date: 20090506
  Serious: No
  Sender: FDA-Public Use
  Company Number: None

PATIENT
  Age: 63 Year
  Sex: Female
  Weight: 86.1834 kg

DRUGS (1)
  1. RECLAST [Suspect]
     Indication: RESORPTION BONE INCREASED
     Dosage: ONCE A YEAR
     Dates: start: 20080717, end: 20080717

REACTIONS (3)
  - ACTIVITIES OF DAILY LIVING IMPAIRED [None]
  - ARTHRALGIA [None]
  - BONE PAIN [None]
